FAERS Safety Report 19310905 (Version 13)
Quarter: 2022Q2

REPORT INFORMATION
  Report Type: Report from Study
  Country: US (occurrence: US)
  Receive Date: 20210526
  Receipt Date: 20220429
  Transmission Date: 20220721
  Serious: Yes (Hospitalization, Other)
  Sender: FDA-Public Use
  Company Number: US-NOVARTISPH-NVSC2021US116017

PATIENT
  Age: 63 Year
  Sex: Male
  Weight: 99.32 kg

DRUGS (4)
  1. TREPROSTINIL [Suspect]
     Active Substance: TREPROSTINIL
     Indication: Pulmonary arterial hypertension
     Dosage: 19 NG/KG/MIN, CONT
     Route: 042
     Dates: start: 20210129
  2. TREPROSTINIL [Suspect]
     Active Substance: TREPROSTINIL
     Dosage: 23 NG/KG/MIN, CONT
     Route: 042
  3. TREPROSTINIL [Suspect]
     Active Substance: TREPROSTINIL
     Dosage: 28.7 NG/KG/MIN, CONT
     Route: 042
     Dates: start: 20210129
  4. TREPROSTINIL [Suspect]
     Active Substance: TREPROSTINIL
     Dosage: 35 NG/KG/MIN, CONT
     Route: 042
     Dates: start: 20210129

REACTIONS (24)
  - Sepsis [Unknown]
  - Loss of consciousness [Unknown]
  - Oxygen saturation decreased [Unknown]
  - Pulmonary hypertension [Unknown]
  - Pneumonia [Unknown]
  - Dysentery [Recovering/Resolving]
  - Complication associated with device [Unknown]
  - Respiratory disorder [Unknown]
  - Weight decreased [Unknown]
  - Abdominal discomfort [Unknown]
  - Dyspnoea [Unknown]
  - Anxiety [Unknown]
  - Feeling abnormal [Unknown]
  - Muscle spasms [Unknown]
  - Cold sweat [Unknown]
  - Device malfunction [Unknown]
  - Device alarm issue [Unknown]
  - Device leakage [Recovered/Resolved]
  - Head discomfort [Unknown]
  - COVID-19 [Unknown]
  - Asthenia [Recovering/Resolving]
  - Pain in jaw [Unknown]
  - Nausea [Unknown]
  - Headache [Recovering/Resolving]

NARRATIVE: CASE EVENT DATE: 20210605
